FAERS Safety Report 6700235-9 (Version None)
Quarter: 2010Q2

REPORT INFORMATION
  Report Type: 
  Country: None (occurrence: None)
  Receive Date: 20100428
  Receipt Date: 20100416
  Transmission Date: 20101027
  Serious: Yes (Other)
  Sender: FDA-Public Use
  Company Number: DE-PFIZER INC-2010048098

PATIENT
  Age: 11 Year
  Sex: Female
  Weight: 56 kg

DRUGS (1)
  1. ZITHROMAX [Suspect]
     Indication: OTITIS MEDIA
     Dosage: 250 MG, 2X/DAY
     Route: 048
     Dates: start: 20100414

REACTIONS (3)
  - MOOD ALTERED [None]
  - SOMNAMBULISM [None]
  - SOMNOLENCE [None]
